FAERS Safety Report 5976449-2 (Version None)
Quarter: 2008Q4

REPORT INFORMATION
  Report Type: 
  Country: None (occurrence: None)
  Receive Date: 20081126
  Receipt Date: 20081117
  Transmission Date: 20090506
  Serious: Yes (Disabling, Other)
  Sender: FDA-Public Use
  Company Number: US-1167879

PATIENT
  Sex: Female

DRUGS (2)
  1. NEVANAC [Suspect]
     Indication: INFLAMMATION
     Dosage: (OPTHALMIC)
     Route: 047
     Dates: start: 20081110
  2. NEVANAC [Suspect]
     Indication: POSTOPERATIVE CARE
     Dosage: (OPTHALMIC)
     Route: 047
     Dates: start: 20081110

REACTIONS (2)
  - BLINDNESS UNILATERAL [None]
  - VISUAL ACUITY REDUCED [None]
